FAERS Safety Report 24792032 (Version 2)
Quarter: 2025Q1

REPORT INFORMATION
  Report Type: Report from Study
  Country: US (occurrence: US)
  Receive Date: 20241231
  Receipt Date: 20250113
  Transmission Date: 20250408
  Serious: Yes (Hospitalization)
  Sender: JAZZ
  Company Number: US-JAZZ PHARMACEUTICALS-2024-US-024993

PATIENT
  Age: 24 Year
  Sex: Female

DRUGS (10)
  1. XYWAV [Suspect]
     Active Substance: CALCIUM OXYBATE\MAGNESIUM OXYBATE\POTASSIUM OXYBATE\SODIUM OXYBATE
     Indication: Hypersomnia
  2. ATENOLOL [Concomitant]
     Active Substance: ATENOLOL
     Dates: start: 20231122
  3. LAMOTRIGINE [Concomitant]
     Active Substance: LAMOTRIGINE
     Dates: start: 20240516
  4. DICYCLOMINE HYDROCHLORIDE [Concomitant]
     Active Substance: DICYCLOMINE HYDROCHLORIDE
     Dates: start: 20240607
  5. ONDANSETRON ODT [ONDANSETRON] [Concomitant]
     Dates: start: 20240530
  6. TRAMADOL HCL [Concomitant]
     Active Substance: TRAMADOL HYDROCHLORIDE
     Dates: start: 20240830
  7. LUMIGAN [Concomitant]
     Active Substance: BIMATOPROST
     Dates: start: 20240829
  8. ESCITALOPRAM [Concomitant]
     Active Substance: ESCITALOPRAM OXALATE
     Dates: start: 20241120
  9. KEFLEX [Concomitant]
     Active Substance: CEPHALEXIN
  10. BACTRIM [Concomitant]
     Active Substance: SULFAMETHOXAZOLE\TRIMETHOPRIM

REACTIONS (1)
  - Abscess limb [Unknown]

NARRATIVE: CASE EVENT DATE: 20241222
